FAERS Safety Report 6635608-6 (Version None)
Quarter: 2010Q1

REPORT INFORMATION
  Report Type: 
  Country: None (occurrence: None)
  Receive Date: 20100315
  Receipt Date: 20100312
  Transmission Date: 20100710
  Serious: Yes (Other)
  Sender: FDA-Public Use
  Company Number: ES-MERCK-1003ESP00006

PATIENT
  Age: 80 Year
  Sex: Male
  Weight: 81 kg

DRUGS (3)
  1. INVANZ [Suspect]
     Indication: CHOLECYSTITIS ACUTE
     Route: 042
     Dates: start: 20100222, end: 20100223
  2. NOLOTIL [Concomitant]
     Route: 065
  3. HEPARIN LOW MOLECULAR WEIGHT [Concomitant]
     Route: 065

REACTIONS (4)
  - CONFUSIONAL STATE [None]
  - DEPRESSED LEVEL OF CONSCIOUSNESS [None]
  - MUSCLE RIGIDITY [None]
  - POSTURE ABNORMAL [None]
